FAERS Safety Report 10602385 (Version 3)
Quarter: 2015Q1

REPORT INFORMATION
  Report Type: Spontaneous
  Country: FR (occurrence: FR)
  Receive Date: 20141124
  Receipt Date: 20150317
  Transmission Date: 20150720
  Serious: Yes (Death, Other)
  Sender: FDA-Public Use
  Company Number: FR-BAXTER-2014BAX068346

PATIENT
  Age: 65 Year
  Sex: Male
  Weight: 49.2 kg

DRUGS (20)
  1. DIANEAL [Suspect]
     Active Substance: CALCIUM CHLORIDE\DEXTROSE\MAGNESIUM CHLORIDE\SODIUM CHLORIDE\SODIUM LACTATE
     Indication: PERITONEAL DIALYSIS
     Dosage: 1 BAG, 06 DAYS/7
     Route: 033
     Dates: start: 20120724
  2. SOLUPRED [Suspect]
     Active Substance: PREDNISOLONE
     Indication: SCLERODERMA
     Route: 065
     Dates: start: 20141103
  3. ESOMEPRAZOLE ACTAVIS [Concomitant]
     Active Substance: ESOMEPRAZOLE
     Indication: PRODUCT USED FOR UNKNOWN INDICATION
     Dosage: 1 CAPSULE
     Route: 048
     Dates: start: 20130913
  4. CORTANCYL [Suspect]
     Active Substance: PREDNISONE
     Indication: SCLERODERMA
     Route: 065
  5. OLMETEC [Concomitant]
     Active Substance: OLMESARTAN MEDOXOMIL
     Indication: PRODUCT USED FOR UNKNOWN INDICATION
     Dosage: 1 TABLET
     Route: 048
     Dates: start: 20140428
  6. GAVISCON [Concomitant]
     Active Substance: ALUMINUM HYDROXIDE\MAGNESIUM CARBONATE
     Dosage: 1 SACH
     Route: 048
     Dates: start: 20140805
  7. DAILY PRO [Concomitant]
     Indication: PRODUCT USED FOR UNKNOWN INDICATION
     Dosage: 1 TABLE SPOON TO BE MIXED IN MEAL
     Route: 065
     Dates: start: 20141013
  8. KARDEGIC [Concomitant]
     Active Substance: ASPIRIN LYSINE
     Indication: PRODUCT USED FOR UNKNOWN INDICATION
     Dosage: 1 SACH
     Route: 048
     Dates: start: 20121217
  9. CALCIDIA [Concomitant]
     Active Substance: CALCIUM POLYCARBOPHIL
     Indication: PRODUCT USED FOR UNKNOWN INDICATION
     Dosage: 1 SACH
     Route: 048
     Dates: start: 20140203
  10. LASILIX [Concomitant]
     Active Substance: FUROSEMIDE
     Indication: PRODUCT USED FOR UNKNOWN INDICATION
     Dosage: 1/4 OF 500 MG TABLET
     Route: 065
     Dates: start: 20140428
  11. DAILY PRO [Concomitant]
     Dosage: 1 TABLE SPOON TO BE MIXED IN MEAL
     Route: 065
     Dates: start: 20141013
  12. UVEDOSE [Concomitant]
     Active Substance: CHOLECALCIFEROL
     Indication: PRODUCT USED FOR UNKNOWN INDICATION
     Dosage: 1 AMPULE
     Route: 065
     Dates: start: 20131230
  13. TEMERIT [Concomitant]
     Active Substance: NEBIVOLOL
     Indication: PRODUCT USED FOR UNKNOWN INDICATION
     Dosage: 1/4 OF 5 MG TABLET
     Route: 048
     Dates: start: 20140428
  14. GAVISCON [Concomitant]
     Active Substance: ALUMINUM HYDROXIDE\MAGNESIUM CARBONATE
     Indication: PRODUCT USED FOR UNKNOWN INDICATION
     Dosage: 1 SACH, 30 MINUTES BEFORE MEAL
     Route: 048
     Dates: start: 20140805
  15. GAVISCON [Concomitant]
     Active Substance: ALUMINUM HYDROXIDE\MAGNESIUM CARBONATE
     Dosage: 1 SACH
     Route: 048
     Dates: start: 20140805
  16. DIFFU K [Concomitant]
     Active Substance: POTASSIUM CHLORIDE
     Dosage: 1 CAPSULE
     Route: 065
     Dates: start: 20140805
  17. DIFFU K [Concomitant]
     Active Substance: POTASSIUM CHLORIDE
     Indication: PRODUCT USED FOR UNKNOWN INDICATION
     Dosage: 1 CAPSULE
     Route: 065
     Dates: start: 20140805
  18. EXTRANEAL [Suspect]
     Active Substance: CALCIUM CHLORIDE\ICODEXTRIN\MAGNESIUM CHLORIDE\SODIUM CHLORIDE\SODIUM LACTATE
     Indication: PERITONEAL DIALYSIS
     Dosage: 06 DAYS/7
     Route: 033
     Dates: start: 20120724
  19. KETODERM [Concomitant]
     Active Substance: KETOCONAZOLE
     Indication: PRODUCT USED FOR UNKNOWN INDICATION
     Dosage: 1 SACHET IN MORNING
     Route: 003
     Dates: start: 20140805
  20. KETODERM [Concomitant]
     Active Substance: KETOCONAZOLE
     Dosage: 1 SACHET IN MORNING
     Route: 003

REACTIONS (5)
  - Poor quality drug administered [Unknown]
  - Death [Fatal]
  - Product quality issue [Unknown]
  - Peritoneal cloudy effluent [Recovered/Resolved]
  - Scleroderma [Unknown]

NARRATIVE: CASE EVENT DATE: 20141106
